FAERS Safety Report 9298287 (Version 1)
Quarter: 2012Q4

REPORT INFORMATION
  Report Type: Spontaneous
  Country: US (occurrence: None)
  Receive Date: 20121001
  Receipt Date: 20121001
  Transmission Date: 20130627
  Serious: Yes (Hospitalization, Other)
  Sender: FDA-Public Use
  Company Number: ADR-2012-01686

PATIENT
  Sex: Male

DRUGS (3)
  1. BACLOFEN INTRATHECAL (BACLOFEN INJECTION) [Suspect]
     Indication: SPASTICITY
  2. ORAL BACLOFEN [Concomitant]
  3. ORAL GABAPENTIN [Concomitant]

REACTIONS (2)
  - Vomiting [None]
  - Cerebrospinal fluid leakage [None]
